FAERS Safety Report 7419609-6 (Version None)
Quarter: 2011Q2

REPORT INFORMATION
  Report Type: 
  Country: None (occurrence: None)
  Receive Date: 20110406
  Receipt Date: 20110322
  Transmission Date: 20111010
  Serious: Yes (Hospitalization)
  Sender: FDA-Public Use
  Company Number: 028959

PATIENT
  Sex: Female
  Weight: 46.1 kg

DRUGS (8)
  1. GASTER D [Concomitant]
  2. GASMOTIN [Concomitant]
  3. ACTOS [Concomitant]
  4. KEPPRA [Suspect]
     Indication: EPILEPSY
     Dosage: 500 MG BID ORAL
     Route: 048
  5. ASPIRIN [Concomitant]
  6. CONIEL [Concomitant]
  7. FRANDOL [Concomitant]
  8. TEGRETOL [Suspect]
     Dosage: 0.2 G TID ORAL
     Route: 048

REACTIONS (14)
  - ALBUMIN GLOBULIN RATIO DECREASED [None]
  - LYMPHOCYTE PERCENTAGE DECREASED [None]
  - C-REACTIVE PROTEIN INCREASED [None]
  - ASPARTATE AMINOTRANSFERASE INCREASED [None]
  - BLOOD ALBUMIN DECREASED [None]
  - BLOOD CREATININE INCREASED [None]
  - BLOOD UREA INCREASED [None]
  - NEUROGENIC BLADDER [None]
  - BLOOD URINE PRESENT [None]
  - GLYCOSYLATED HAEMOGLOBIN INCREASED [None]
  - BLOOD GLUCOSE INCREASED [None]
  - BLOOD LACTATE DEHYDROGENASE INCREASED [None]
  - BLOOD TRIGLYCERIDES INCREASED [None]
  - ALANINE AMINOTRANSFERASE INCREASED [None]
